FAERS Safety Report 7314008-X (Version None)
Quarter: 2011Q1

REPORT INFORMATION
  Report Type: 
  Country: None (occurrence: None)
  Receive Date: 20110225
  Receipt Date: 20110222
  Transmission Date: 20110831
  Serious: Yes (Death, Hospitalization)
  Sender: FDA-Public Use
  Company Number: PHFR2010GB03959

PATIENT
  Sex: Male

DRUGS (3)
  1. CLOZARIL [Suspect]
     Dosage: UNK
  2. CLOZARIL [Suspect]
     Indication: SCHIZOPHRENIA
     Dosage: UNK
     Route: 048
     Dates: start: 20090506
  3. PIRENZEPINE [Concomitant]

REACTIONS (4)
  - MALAISE [None]
  - OVERDOSE [None]
  - DEPRESSION [None]
  - RESPIRATORY DEPRESSION [None]
